FAERS Safety Report 8697968 (Version 2)
Quarter: 2013Q4

REPORT INFORMATION
  Report Type: Spontaneous
  Country: US (occurrence: US)
  Receive Date: 20120801
  Receipt Date: 20131107
  Transmission Date: 20140711
  Serious: Yes (Death, Hospitalization, Other)
  Sender: FDA-Public Use
  Company Number: US-MSD-1207USA009871

PATIENT
  Sex: Male

DRUGS (12)
  1. ZOCOR [Suspect]
     Dosage: 20 MG, QD
     Route: 048
  2. FUROSEMIDE [Suspect]
     Dosage: 40 MG, UNK
     Route: 048
  3. LEVOTHYROXINE SODIUM [Suspect]
     Dosage: 100 MICROGRAM, QD
     Route: 048
  4. CO-DIOVAN [Suspect]
     Route: 048
  5. FORMOTOP [Suspect]
     Dosage: 12 MICROGRAM, UNK
  6. RASILEZ [Suspect]
     Dosage: UNK
     Route: 048
  7. PROPAFENONE HYDROCHLORIDE [Suspect]
     Dosage: 300 MG, UNK
     Route: 048
  8. OMEP [Suspect]
     Dosage: 20 MG, QD
     Route: 048
  9. PENTALONG [Suspect]
     Dosage: 50 MG, QD
     Route: 048
  10. PLAVIX [Suspect]
     Dosage: 75 MG, QD
     Route: 048
  11. PANTOZOL [Concomitant]
     Dosage: 20 MG, UNK
     Route: 048
  12. ARIXTRA [Concomitant]
     Dosage: 7.5 MG, UNK
     Route: 058

REACTIONS (6)
  - Sepsis [Fatal]
  - Intervertebral disc protrusion [Fatal]
  - Chronic obstructive pulmonary disease [Fatal]
  - Oedema [Fatal]
  - Lumbar spinal stenosis [Fatal]
  - Multi-organ failure [Fatal]
